FAERS Safety Report 9688594 (Version 3)
Quarter: 2013Q4

REPORT INFORMATION
  Report Type: Spontaneous
  Country: US (occurrence: US)
  Receive Date: 20131114
  Receipt Date: 20131223
  Transmission Date: 20140711
  Serious: No
  Sender: FDA-Public Use
  Company Number: US-PFIZER INC-2013324210

PATIENT
  Age: 29 Year
  Sex: Female
  Weight: 122 kg

DRUGS (5)
  1. XELJANZ [Suspect]
     Indication: RHEUMATOID ARTHRITIS
     Dosage: 5 MG, 2X/DAY
     Route: 048
  2. ORTHO TRI-CYCLEN LO [Concomitant]
     Dosage: UNK
  3. GLUMETZA [Concomitant]
     Dosage: 500 MG
  4. FOLIC ACID [Concomitant]
     Dosage: 5 MG
  5. METHOTREXATE [Concomitant]
     Dosage: 2.5 MG

REACTIONS (2)
  - Drug ineffective [Unknown]
  - Hypothyroidism [Unknown]
